FAERS Safety Report 4597393-1 (Version None)
Quarter: 2005Q1

REPORT INFORMATION
  Report Type: 
  Country: None (occurrence: None)
  Receive Date: 20050303
  Receipt Date: 20041210
  Transmission Date: 20050727
  Serious: Yes (Other)
  Sender: FDA-Public Use
  Company Number: US-GLAXOSMITHKLINE-A0536835A

PATIENT
  Age: 77 Year
  Sex: Male

DRUGS (1)
  1. REQUIP [Suspect]
     Indication: ESSENTIAL TREMOR
     Dates: start: 20040101, end: 20040101

REACTIONS (2)
  - HALLUCINATION, VISUAL [None]
  - SLEEP DISORDER [None]
